FAERS Safety Report 7876040-7 (Version None)
Quarter: 2011Q4

REPORT INFORMATION
  Report Type: 
  Country: None (occurrence: None)
  Receive Date: 20111031
  Receipt Date: 20111022
  Transmission Date: 20120403
  Serious: Yes (Hospitalization)
  Sender: FDA-Public Use
  Company Number: US-ROCHE-1006521

PATIENT
  Age: 34 Year
  Sex: Female

DRUGS (4)
  1. LOVENOX [Concomitant]
     Indication: THROMBOSIS
     Dates: start: 20110718
  2. TOPOTECAN HYDROCHLORIDE [Suspect]
     Indication: CERVIX CARCINOMA
     Route: 042
     Dates: start: 20110808
  3. AVASTIN [Suspect]
     Indication: CERVIX CARCINOMA
     Dosage: OVER 30-90 MIN ON DAY 1
     Route: 042
     Dates: start: 20110808
  4. PACLITAXEL [Suspect]
     Indication: CERVIX CARCINOMA
     Dosage: OVER 3 HRS ON DAY 1
     Route: 042
     Dates: start: 20110808

REACTIONS (1)
  - CYSTITIS NONINFECTIVE [None]
